FAERS Safety Report 9469293 (Version 1)
Quarter: 2013Q3

REPORT INFORMATION
  Report Type: Spontaneous
  Country: US (occurrence: None)
  Receive Date: 20130815
  Receipt Date: 20130815
  Transmission Date: 20140515
  Serious: Yes (Hospitalization)
  Sender: FDA-Public Use
  Company Number: AUR-APL-2013-06724

PATIENT
  Age: 68 Year
  Sex: Male

DRUGS (6)
  1. RAMIPRIL [Suspect]
     Indication: PRODUCT USED FOR UNKNOWN INDICATION
  2. METFORMIN [Suspect]
     Indication: TYPE 2 DIABETES MELLITUS
     Dates: start: 20111201
  3. COREG (CARVEDILOL) [Suspect]
     Indication: PRODUCT USED FOR UNKNOWN INDICATION
  4. SAXAGLIPTIN [Suspect]
     Indication: TYPE 2 DIABETES MELLITUS
     Dates: start: 20110826, end: 20121101
  5. NIACIN (NICOTINIC ACID) [Concomitant]
  6. ASPIRIN (ACETYLSALICYLIC ACID) [Concomitant]

REACTIONS (12)
  - Hypotension [None]
  - Vomiting [None]
  - Nausea [None]
  - Dehydration [None]
  - Asthenia [None]
  - Dizziness [None]
  - Renal failure acute [None]
  - Hypovolaemia [None]
  - Iatrogenic injury [None]
  - Fluid overload [None]
  - Pneumothorax [None]
  - Lung neoplasm malignant [None]
